FAERS Safety Report 8066058-6 (Version None)
Quarter: 2012Q1

REPORT INFORMATION
  Report Type: 
  Country: None (occurrence: None)
  Receive Date: 20120124
  Receipt Date: 20120117
  Transmission Date: 20120608
  Serious: Yes (Other)
  Sender: FDA-Public Use
  Company Number: US-JNJFOC-20120106921

PATIENT
  Sex: Female
  Weight: 72.58 kg

DRUGS (1)
  1. STELARA [Suspect]
     Indication: PSORIASIS
     Dosage: DOSE UNSPECIFIED, EVERY 3 MONTHS
     Route: 058
     Dates: start: 20110101

REACTIONS (5)
  - THERAPEUTIC RESPONSE DECREASED [None]
  - PRURITUS [None]
  - MEMORY IMPAIRMENT [None]
  - PSORIASIS [None]
  - RASH [None]
